FAERS Safety Report 17843343 (Version 1)
Quarter: 2020Q2

REPORT INFORMATION
  Report Type: Spontaneous
  Country: ES (occurrence: ES)
  Receive Date: 20200530
  Receipt Date: 20200530
  Transmission Date: 20200714
  Serious: Yes (Life-Threatening, Hospitalization)
  Sender: FDA-Public Use
  Company Number: NVSC2020ES149380

PATIENT
  Age: 22 Year
  Sex: Female

DRUGS (1)
  1. PARACETAMOL [Suspect]
     Active Substance: ACETAMINOPHEN
     Indication: SUICIDE ATTEMPT
     Dosage: 40 G, ONCE/SINGLE (REFIERE INGESTA DE 4 BLISTERS (40 COMPRIMIDOS) DE PARACETAMOL DE 1 GR (40GR TOTAL
     Route: 048
     Dates: start: 20191011, end: 20191011

REACTIONS (2)
  - Hypocoagulable state [Recovered/Resolved]
  - Hepatocellular injury [Recovering/Resolving]

NARRATIVE: CASE EVENT DATE: 20191012
